FAERS Safety Report 7456672-0 (Version None)
Quarter: 2011Q2

REPORT INFORMATION
  Report Type: 
  Country: None (occurrence: None)
  Receive Date: 20110503
  Receipt Date: 20110428
  Transmission Date: 20111010
  Serious: Yes (Other)
  Sender: FDA-Public Use
  Company Number: IL-PFIZER INC-2011091462

PATIENT
  Sex: Male

DRUGS (2)
  1. GEODON [Suspect]
     Indication: SCHIZOPHRENIA
     Dosage: 40 MG, UNK
     Route: 048
  2. GEODON [Suspect]
     Dosage: 60 MG, UNK
     Route: 048

REACTIONS (5)
  - VISUAL IMPAIRMENT [None]
  - NERVOUSNESS [None]
  - URINARY RETENTION [None]
  - EXTRAOCULAR MUSCLE DISORDER [None]
  - DELUSION [None]
